FAERS Safety Report 25371616 (Version 1)
Quarter: 2025Q2

REPORT INFORMATION
  Report Type: Spontaneous
  Country: KR (occurrence: KR)
  Receive Date: 20250529
  Receipt Date: 20250529
  Transmission Date: 20250717
  Serious: Yes (Hospitalization)
  Sender: CELLTRION
  Company Number: KR-CELLTRION INC.-2025KR016288

PATIENT

DRUGS (16)
  1. YUFLYMA [Suspect]
     Active Substance: ADALIMUMAB-AATY
     Indication: Axial spondyloarthritis
     Dosage: 40 MG BIWEEKLY, SINGLE DOSE
     Route: 058
     Dates: start: 20241217, end: 20241217
  2. YUFLYMA [Suspect]
     Active Substance: ADALIMUMAB-AATY
     Dosage: 40 MG BIWEEKLY, SINGLE DOSE
     Route: 058
     Dates: start: 20241231, end: 20241231
  3. YUFLYMA [Suspect]
     Active Substance: ADALIMUMAB-AATY
     Dosage: 40 MG BIWEEKLY, SINGLE DOSE
     Route: 058
     Dates: start: 20250121, end: 20250121
  4. YUFLYMA [Suspect]
     Active Substance: ADALIMUMAB-AATY
     Dosage: 40 MG BIWEEKLY, SINGLE DOSE
     Route: 058
     Dates: start: 20250204, end: 20250204
  5. YUFLYMA [Suspect]
     Active Substance: ADALIMUMAB-AATY
     Dosage: 40 MG BIWEEKLY, SINGLE DOSE
     Route: 058
     Dates: start: 20250218, end: 20250218
  6. YUFLYMA [Suspect]
     Active Substance: ADALIMUMAB-AATY
     Dosage: 40 MG BIWEEKLY, SINGLE DOSE
     Route: 058
     Dates: start: 20250304, end: 20250304
  7. YUFLYMA [Suspect]
     Active Substance: ADALIMUMAB-AATY
     Dosage: 40 MG BIWEEKLY, SINGLE DOSE
     Route: 058
     Dates: start: 20250320, end: 20250320
  8. MEDILAC DS [Concomitant]
     Indication: Constipation
     Route: 048
     Dates: start: 20190917
  9. FEBUXOSTAT [Concomitant]
     Active Substance: FEBUXOSTAT
     Indication: Gout
     Route: 048
     Dates: start: 20170511
  10. FEXUCLUE [Concomitant]
     Indication: Prophylaxis
     Route: 048
     Dates: start: 20240423
  11. REBAMIPIDE [Concomitant]
     Active Substance: REBAMIPIDE
     Indication: Prophylaxis
     Route: 048
     Dates: start: 20240423
  12. JANUMET XR [Concomitant]
     Active Substance: METFORMIN HYDROCHLORIDE\SITAGLIPTIN PHOSPHATE
     Indication: Diabetes mellitus
     Route: 048
     Dates: start: 20240716
  13. ACTOS [Concomitant]
     Active Substance: PIOGLITAZONE HYDROCHLORIDE
     Indication: Diabetes mellitus
     Route: 048
     Dates: start: 20250121
  14. EZETIMIBE\ROSUVASTATIN [Concomitant]
     Active Substance: EZETIMIBE\ROSUVASTATIN
     Indication: Hyperlipidaemia
     Route: 048
     Dates: start: 20240423
  15. TWYNSTA [Concomitant]
     Active Substance: AMLODIPINE BESYLATE\TELMISARTAN
     Indication: Hypertension
     Route: 048
     Dates: start: 20160613
  16. JOINS [Concomitant]
     Indication: Osteoarthritis
     Route: 048
     Dates: start: 20220512, end: 20250120

REACTIONS (1)
  - Skin cancer [Recovering/Resolving]

NARRATIVE: CASE EVENT DATE: 20250331
